FAERS Safety Report 6004963-2 (Version None)
Quarter: 2008Q4

REPORT INFORMATION
  Report Type: 
  Country: None (occurrence: None)
  Receive Date: 20081216
  Receipt Date: 20071130
  Transmission Date: 20090506
  Serious: No
  Sender: FDA-Public Use
  Company Number: US-AMGEN-KDL254990

PATIENT
  Sex: Male

DRUGS (1)
  1. ENBREL [Suspect]
     Indication: RHEUMATOID ARTHRITIS
     Route: 058
     Dates: start: 20070301

REACTIONS (5)
  - ARTHRALGIA [None]
  - HAND DEFORMITY [None]
  - PAIN IN EXTREMITY [None]
  - PAIN IN JAW [None]
  - THERAPEUTIC RESPONSE DECREASED [None]
